FAERS Safety Report 14914911 (Version 1)
Quarter: 2018Q2

REPORT INFORMATION
  Report Type: Spontaneous
  Country: US (occurrence: US)
  Receive Date: 20180518
  Receipt Date: 20180518
  Transmission Date: 20180711
  Serious: No
  Sender: FDA-Public Use
  Company Number: US-TEVA-2018-US-892110

PATIENT
  Sex: Male

DRUGS (7)
  1. ELIGARD [Suspect]
     Active Substance: LEUPROLIDE ACETATE
     Route: 065
     Dates: start: 201712
  2. ESTROGEN [Suspect]
     Active Substance: ESTROGENS
     Route: 065
     Dates: start: 201501
  3. PROGESTERONE. [Suspect]
     Active Substance: PROGESTERONE
     Dosage: DAILY
     Route: 065
  4. PROGESTERONE. [Suspect]
     Active Substance: PROGESTERONE
     Dosage: 10 DAYS/MONTH
     Route: 065
     Dates: start: 2016
  5. ELIGARD [Suspect]
     Active Substance: LEUPROLIDE ACETATE
     Indication: TRANS-SEXUALISM
     Dosage: END OF 2014/START OF 2015
     Route: 058
     Dates: start: 2014
  6. ZOLOFT [Concomitant]
     Active Substance: SERTRALINE HYDROCHLORIDE
  7. BUSPIRONE [Concomitant]
     Active Substance: BUSPIRONE HYDROCHLORIDE

REACTIONS (5)
  - Anxiety [Not Recovered/Not Resolved]
  - Musculoskeletal stiffness [Recovering/Resolving]
  - Feeling hot [Recovered/Resolved]
  - Obsessive-compulsive disorder [Not Recovered/Not Resolved]
  - Paraesthesia [Recovering/Resolving]

NARRATIVE: CASE EVENT DATE: 2017
